FAERS Safety Report 16408818 (Version 2)
Quarter: 2019Q3

REPORT INFORMATION
  Report Type: Spontaneous
  Country: DE (occurrence: DE)
  Receive Date: 20190610
  Receipt Date: 20190806
  Transmission Date: 20191004
  Serious: Yes (Hospitalization)
  Sender: FDA-Public Use
  Company Number: DE-ROCHE-2328358

PATIENT
  Age: 35 Year
  Sex: Female
  Weight: 103 kg

DRUGS (7)
  1. CANDESARTAN. [Concomitant]
     Active Substance: CANDESARTAN
     Indication: HYPERTENSION
     Dosage: IN THE MORNING
     Route: 048
  2. OCREVUS [Suspect]
     Active Substance: OCRELIZUMAB
     Dosage: 2ND INFUSION
     Route: 042
     Dates: start: 20180413
  3. OCREVUS [Suspect]
     Active Substance: OCRELIZUMAB
     Indication: RELAPSING-REMITTING MULTIPLE SCLEROSIS
     Dosage: 1ST INFUSION
     Route: 042
     Dates: start: 20180308
  4. HCT [Concomitant]
     Active Substance: HYDROCHLOROTHIAZIDE
     Indication: HYPERTENSION
     Dosage: IN THE MORNING
     Route: 048
  5. OCREVUS [Suspect]
     Active Substance: OCRELIZUMAB
     Route: 042
     Dates: start: 201904
  6. OCREVUS [Suspect]
     Active Substance: OCRELIZUMAB
     Route: 042
     Dates: start: 201809
  7. METOPROLOL. [Concomitant]
     Active Substance: METOPROLOL
     Indication: HYPERTENSION
     Route: 048

REACTIONS (3)
  - Dizziness [Unknown]
  - Multiple sclerosis [Recovered/Resolved]
  - Decreased vibratory sense [Unknown]

NARRATIVE: CASE EVENT DATE: 20180315
